FAERS Safety Report 21190969 (Version 4)
Quarter: 2023Q1

REPORT INFORMATION
  Report Type: Report from Study
  Country: US (occurrence: US)
  Receive Date: 20220809
  Receipt Date: 20230328
  Transmission Date: 20230418
  Serious: No
  Sender: FDA-Public Use
  Company Number: US-NOVARTISTESTPH-NVSC2022US179673

PATIENT
  Sex: Female

DRUGS (1)
  1. KESIMPTA [Suspect]
     Active Substance: OFATUMUMAB
     Indication: Multiple sclerosis
     Dosage: 20MG/0.4ML (INJECT 1 PEN SUBCUTANEOUSLY MONTHLY STARTING AT WEEK 4)
     Route: 058

REACTIONS (5)
  - Hypoaesthesia [Unknown]
  - Product dose omission issue [Unknown]
  - Fatigue [Unknown]
  - Amnesia [Unknown]
  - Disturbance in attention [Unknown]
